FAERS Safety Report 4886035-3 (Version None)
Quarter: 2006Q1

REPORT INFORMATION
  Report Type: 
  Country: None (occurrence: None)
  Receive Date: 20060118
  Receipt Date: 20060118
  Transmission Date: 20060701
  Serious: Yes (Other)
  Sender: FDA-Public Use
  Company Number: None

PATIENT
  Age: 44 Year
  Sex: Female
  Weight: 45.3597 kg

DRUGS (3)
  1. SYNTHROID [Suspect]
     Indication: OEDEMA PERIPHERAL
  2. ZAROXOLYN [Suspect]
     Indication: THYROID DISORDER
     Dosage: 5 MG QD
  3. POTASSIUM CHLORIDE [Suspect]
     Dosage: 1 TAB DAY

REACTIONS (3)
  - ABDOMINAL PAIN [None]
  - PHARMACEUTICAL PRODUCT COMPLAINT [None]
  - VOMITING [None]
